FAERS Safety Report 7940860-0 (Version None)
Quarter: 2011Q4

REPORT INFORMATION
  Report Type: 
  Country: None (occurrence: None)
  Receive Date: 20111122
  Receipt Date: 20111117
  Transmission Date: 20120403
  Serious: Yes (Hospitalization)
  Sender: FDA-Public Use
  Company Number: 2011MA016570

PATIENT
  Age: 69 Year
  Sex: Male
  Weight: 90.7194 kg

DRUGS (2)
  1. OXYCODONE HCL [Concomitant]
  2. GABAPENTIN [Suspect]
     Indication: PAIN
     Dosage: 1200 MG, QD, PO
     Route: 048
     Dates: start: 20110926

REACTIONS (5)
  - DIARRHOEA [None]
  - ANXIETY [None]
  - ANGER [None]
  - HEADACHE [None]
  - UNEVALUABLE EVENT [None]
